FAERS Safety Report 16334231 (Version 1)
Quarter: 2019Q2

REPORT INFORMATION
  Report Type: Report from Study
  Country: DE (occurrence: DE)
  Receive Date: 20190520
  Receipt Date: 20190520
  Transmission Date: 20190711
  Serious: Yes (Death, Hospitalization)
  Sender: FDA-Public Use
  Company Number: DE-PFIZER INC-2019210782

PATIENT
  Age: 75 Year
  Sex: Female
  Weight: 70 kg

DRUGS (19)
  1. BISOPROLOL [Concomitant]
     Active Substance: BISOPROLOL
     Indication: HYPERTENSION
     Dosage: 2.5 MG, 1X/DAY
     Route: 048
  2. ASPIRIN. [Concomitant]
     Active Substance: ASPIRIN
     Dosage: 100 MG ONCE DAILY
     Route: 048
  3. IRINOTECAN HCL [Suspect]
     Active Substance: IRINOTECAN HYDROCHLORIDE
     Indication: COLORECTAL CANCER METASTATIC
     Dosage: 180 MG/M2, UNK
     Route: 042
     Dates: start: 20121211, end: 20130409
  4. BEVACIZUMAB. [Suspect]
     Active Substance: BEVACIZUMAB
     Indication: COLORECTAL CANCER METASTATIC
     Dosage: 5 MG/KG, 350 MG
     Route: 042
     Dates: start: 20121211, end: 20130409
  5. CEFUROXIM [Concomitant]
     Active Substance: CEFUROXIME
     Indication: DIVERTICULUM INTESTINAL
     Route: 065
     Dates: start: 20130121, end: 20130129
  6. AMLODIPINE [Concomitant]
     Active Substance: AMLODIPINE BESYLATE
     Indication: HYPERTENSION
     Dosage: 5 MG, 1X/DAY
     Route: 048
  7. MUCOFALK [PLANTAGO AFRA SEED HUSK] [Concomitant]
     Active Substance: PLANTAGO AFRA SEED
     Indication: DIVERTICULUM INTESTINAL
     Dosage: 1 DF, UNK
     Route: 048
     Dates: start: 20130121, end: 20130129
  8. SAROTEN [Concomitant]
     Active Substance: AMITRIPTYLINE
     Indication: DEPRESSION
     Dosage: 1000 MG, 1X/DAY
     Route: 048
  9. GLIBENCLAMIDE [Concomitant]
     Active Substance: GLYBURIDE
     Indication: DIABETES MELLITUS
     Dosage: 3.5 MG, 1X/DAY
     Route: 048
  10. FLUOROURACIL. [Suspect]
     Active Substance: FLUOROURACIL
     Indication: COLORECTAL CANCER METASTATIC
     Dosage: 600 MG/M2, UNK
     Route: 040
     Dates: start: 20121211, end: 20130409
  11. FLUOROURACIL. [Suspect]
     Active Substance: FLUOROURACIL
     Dosage: 4000 UNK, UNK
     Route: 041
     Dates: start: 20121211, end: 20130410
  12. INSULIN [Concomitant]
     Active Substance: INSULIN NOS
     Indication: DIABETES MELLITUS
     Dosage: 8 IU DAILYRAPID INSULIN
     Route: 058
  13. MCP [Concomitant]
     Active Substance: METOCLOPRAMIDE HYDROCHLORIDE
     Indication: NAUSEA
     Route: 042
     Dates: start: 20130121, end: 20130121
  14. LOPERAMID [Concomitant]
     Active Substance: LOPERAMIDE
     Indication: DIARRHOEA
     Route: 065
     Dates: start: 20130117, end: 20130121
  15. SAROTEN [Concomitant]
     Active Substance: AMITRIPTYLINE
     Route: 048
  16. DICLOPHENAC [Concomitant]
     Active Substance: DICLOFENAC SODIUM
     Indication: HEPATIC PAIN
     Dosage: 150 MG, UNK
     Route: 065
  17. CALCIUM FOLINATE [Suspect]
     Active Substance: LEUCOVORIN CALCIUM
     Indication: COLORECTAL CANCER METASTATIC
     Dosage: 400 MG/M2, UNK
     Route: 042
     Dates: start: 20121211, end: 20130409
  18. METRONIDAZOLE. [Concomitant]
     Active Substance: METRONIDAZOLE
     Indication: DIVERTICULUM INTESTINAL
     Route: 065
     Dates: start: 20130121, end: 20130129
  19. HUMALOG [Concomitant]
     Active Substance: INSULIN LISPRO
     Indication: DIABETES MELLITUS

REACTIONS (9)
  - Pneumonia [Recovered/Resolved with Sequelae]
  - Depression [Recovered/Resolved]
  - Tachycardia [Recovered/Resolved]
  - Pyrexia [Recovered/Resolved]
  - C-reactive protein increased [Recovered/Resolved]
  - Anaemia of malignant disease [Recovered/Resolved]
  - Oedema peripheral [Recovered/Resolved]
  - Death [Fatal]
  - Hyperventilation [Recovered/Resolved]

NARRATIVE: CASE EVENT DATE: 20130516
